FAERS Safety Report 15661023 (Version 2)
Quarter: 2019Q1

REPORT INFORMATION
  Report Type: Spontaneous
  Country: FR (occurrence: FR)
  Receive Date: 20181127
  Receipt Date: 20190131
  Transmission Date: 20190417
  Serious: Yes (Death, Other)
  Sender: FDA-Public Use
  Company Number: FR-TEVA-2018-FR-980145

PATIENT
  Age: 59 Year
  Sex: Male

DRUGS (4)
  1. RITUXIMAB. [Suspect]
     Active Substance: RITUXIMAB
     Indication: MANTLE CELL LYMPHOMA STAGE III
     Dosage: 4 CYCLES
     Route: 065
  2. CYTARABINE. [Suspect]
     Active Substance: CYTARABINE
     Indication: DIFFUSE LARGE B-CELL LYMPHOMA STAGE IV
     Dosage: 4 CYCLES
     Route: 065
  3. OXALIPLATIN. [Suspect]
     Active Substance: OXALIPLATIN
     Indication: MANTLE CELL LYMPHOMA STAGE III
     Dosage: 4 CYCLES
     Route: 065
  4. DEXAMETHASONE. [Suspect]
     Active Substance: DEXAMETHASONE
     Indication: MANTLE CELL LYMPHOMA STAGE III
     Dosage: 4 CYCLES
     Route: 065

REACTIONS (7)
  - Hepatic failure [Fatal]
  - Acute kidney injury [Fatal]
  - Intestinal ischaemia [Fatal]
  - Arrhythmia [Fatal]
  - Hepatitis fulminant [Unknown]
  - Venoocclusive liver disease [Unknown]
  - Lactic acidosis [Unknown]
